FAERS Safety Report 7748622-4 (Version None)
Quarter: 2011Q3

REPORT INFORMATION
  Report Type: 
  Country: None (occurrence: None)
  Receive Date: 20110914
  Receipt Date: 20110906
  Transmission Date: 20111222
  Serious: Yes (Hospitalization)
  Sender: FDA-Public Use
  Company Number: US-BIOGENIDEC-2011BI034467

PATIENT
  Age: 46 Year
  Sex: Female

DRUGS (1)
  1. TYSABRI [Suspect]
     Indication: MULTIPLE SCLEROSIS
     Route: 042
     Dates: start: 20110606, end: 20110705

REACTIONS (6)
  - LIVER FUNCTION TEST ABNORMAL [None]
  - NAUSEA [None]
  - ASTHENIA [None]
  - MUSCLE SPASMS [None]
  - VOMITING [None]
  - ABDOMINAL PAIN UPPER [None]
